FAERS Safety Report 19238205 (Version 1)
Quarter: 2021Q2

REPORT INFORMATION
  Report Type: Report from Study
  Country: US (occurrence: US)
  Receive Date: 20210510
  Receipt Date: 20210510
  Transmission Date: 20210717
  Serious: Yes (Death)
  Sender: FDA-Public Use
  Company Number: US-ENDO PHARMACEUTICALS INC-2021-002831

PATIENT
  Age: 61 Year
  Sex: Male

DRUGS (4)
  1. INTRAVENOUS (IV) DYE (UNSPECIFIED) [Concomitant]
     Indication: POSITRON EMISSION TOMOGRAM
     Dosage: UNK UNKNOWN, SINGLE
     Route: 042
  2. PERCOCET [Suspect]
     Active Substance: ACETAMINOPHEN\OXYCODONE HYDROCHLORIDE
     Indication: ABDOMINAL PAIN
     Dosage: 10 MG, Q4H (1 IN 4 HR)
     Route: 065
     Dates: start: 20210414, end: 20200415
  3. LONSURF [Suspect]
     Active Substance: TIPIRACIL HYDROCHLORIDE\TRIFLURIDINE
     Indication: PRODUCT USED FOR UNKNOWN INDICATION
     Dosage: CYCLE 1, CURRENT CYCLE UNKNOWN (80 MG,  IN 0.5 D)
     Route: 048
     Dates: start: 20201012, end: 2021
  4. LONSURF [Suspect]
     Active Substance: TIPIRACIL HYDROCHLORIDE\TRIFLURIDINE
     Dosage: UNKNOWN, UNKNOWN, UNK (CYCLE UNKNOWN)
     Route: 048
     Dates: start: 20210329

REACTIONS (5)
  - Abdominal discomfort [Unknown]
  - Fall [Unknown]
  - Asthenia [Unknown]
  - Death [Fatal]
  - Skin discolouration [Unknown]

NARRATIVE: CASE EVENT DATE: 20210415
